FAERS Safety Report 6174970-8 (Version None)
Quarter: 2009Q2

REPORT INFORMATION
  Report Type: 
  Country: None (occurrence: None)
  Receive Date: 20090430
  Receipt Date: 20081030
  Transmission Date: 20091009
  Serious: No
  Sender: FDA-Public Use
  Company Number: US-ASTRAZENECA-2008UW24299

PATIENT
  Age: 59 Year
  Sex: Female
  Weight: 73.5 kg

DRUGS (4)
  1. NEXIUM [Suspect]
     Indication: GASTROOESOPHAGEAL REFLUX DISEASE
     Route: 048
  2. CELEXA [Concomitant]
  3. XANAX [Concomitant]
  4. SYNTHOID [Concomitant]

REACTIONS (2)
  - DRUG ADMINISTRATION ERROR [None]
  - DYSPEPSIA [None]
